FAERS Safety Report 20480961 (Version 1)
Quarter: 2022Q1

REPORT INFORMATION
  Report Type: Spontaneous
  Country: DE (occurrence: DE)
  Receive Date: 20220216
  Receipt Date: 20220216
  Transmission Date: 20220423
  Serious: Yes (Other)
  Sender: FDA-Public Use
  Company Number: None

PATIENT
  Age: 1 Day
  Sex: Male
  Weight: 3.55 kg

DRUGS (4)
  1. KEPPRA [Suspect]
     Active Substance: LEVETIRACETAM
     Indication: Product used for unknown indication
     Dosage: 1750 MILLIGRAM, 2X/DAY (BID)
     Route: 064
     Dates: start: 20200506, end: 20210205
  2. RISPERIDONE [Suspect]
     Active Substance: RISPERIDONE
     Indication: Depression
     Dosage: 1 [MG/D (0.5-0-05) ]
     Route: 064
     Dates: start: 20200506, end: 20210205
  3. LAMOTRIGINE [Suspect]
     Active Substance: LAMOTRIGINE
     Indication: Epilepsy
     Dosage: 100 MILLIGRAM, 2X/DAY (BID)
     Route: 064
     Dates: start: 20200506, end: 20210205
  4. FOLIC ACID [Concomitant]
     Active Substance: FOLIC ACID
     Indication: Prophylaxis of neural tube defect
     Dosage: 5 [MG/D ]
     Route: 064
     Dates: start: 20200625, end: 20210205

REACTIONS (6)
  - Drug withdrawal syndrome neonatal [Recovered/Resolved]
  - Neonatal infection [Recovered/Resolved]
  - Respiratory disorder neonatal [Recovered/Resolved]
  - Meningeal disorder [Unknown]
  - Jaundice neonatal [Unknown]
  - Maternal exposure during pregnancy [Unknown]

NARRATIVE: CASE EVENT DATE: 20210201
